FAERS Safety Report 23046786 (Version 5)
Quarter: 2023Q4

REPORT INFORMATION
  Report Type: Spontaneous
  Country: BR (occurrence: BR)
  Receive Date: 20231009
  Receipt Date: 20231222
  Transmission Date: 20240110
  Serious: Yes (Hospitalization, Other)
  Sender: FDA-Public Use
  Company Number: BR-NAPPMUNDI-GBR-2023-0110403

PATIENT
  Age: 41 Year
  Sex: Female
  Weight: 65 kg

DRUGS (9)
  1. BUPRENORPHINE [Interacting]
     Active Substance: BUPRENORPHINE
     Indication: Pain
     Dosage: 10 MILLIGRAM, 1 PATCH, WEEKLY
     Route: 062
     Dates: start: 20230804
  2. BUPRENORPHINE [Interacting]
     Active Substance: BUPRENORPHINE
     Indication: Procedural pain
     Dosage: 20 MILLIGRAM,1 PATCH, WEEKLY
     Route: 062
     Dates: start: 20230901, end: 20230914
  3. BUPRENORPHINE [Interacting]
     Active Substance: BUPRENORPHINE
     Dosage: 20 MILLIGRAM
     Route: 062
     Dates: start: 20230914, end: 20230921
  4. BUPRENORPHINE [Interacting]
     Active Substance: BUPRENORPHINE
     Dosage: 20 MILLIGRAM,1 PATCH, WEEKLY
     Route: 062
     Dates: start: 20230921, end: 20230923
  5. CODEINE [Interacting]
     Active Substance: CODEINE
     Indication: Muscle spasms
     Dosage: UNK
     Route: 065
  6. CINNARIZINE [Concomitant]
     Active Substance: CINNARIZINE
     Indication: Labyrinthitis
     Dosage: 25 MILLIGRAM, 3 TIMES A DAY
     Route: 048
  7. DULOXETINE HYDROCHLORIDE [Concomitant]
     Active Substance: DULOXETINE HYDROCHLORIDE
     Indication: Pain
     Dosage: 30 MILLIGRAM, DAILY
     Route: 048
  8. DULOXETINE HYDROCHLORIDE [Concomitant]
     Active Substance: DULOXETINE HYDROCHLORIDE
     Indication: Depression
  9. TAPENTADOL HYDROCHLORIDE [Concomitant]
     Active Substance: TAPENTADOL HYDROCHLORIDE
     Indication: Pain
     Dosage: ONCE A DAY
     Route: 048

REACTIONS (20)
  - Product odour abnormal [Unknown]
  - Night sweats [Not Recovered/Not Resolved]
  - Muscle spasms [Recovered/Resolved]
  - Chills [Recovered/Resolved]
  - Muscle spasms [Recovered/Resolved]
  - Hyperhidrosis [Not Recovered/Not Resolved]
  - Tremor [Not Recovered/Not Resolved]
  - Shock [Recovering/Resolving]
  - Product adhesion issue [Unknown]
  - Drug interaction [Not Recovered/Not Resolved]
  - Application site pruritus [Not Recovered/Not Resolved]
  - Drug ineffective [Unknown]
  - Malaise [Not Recovered/Not Resolved]
  - Headache [Not Recovered/Not Resolved]
  - Abdominal pain upper [Not Recovered/Not Resolved]
  - Nausea [Not Recovered/Not Resolved]
  - Application site erythema [Recovered/Resolved]
  - Treatment noncompliance [Unknown]
  - Muscle spasms [Not Recovered/Not Resolved]
  - Memory impairment [Not Recovered/Not Resolved]

NARRATIVE: CASE EVENT DATE: 20230801
